FAERS Safety Report 17347160 (Version 1)
Quarter: 2020Q1

REPORT INFORMATION
  Report Type: Spontaneous
  Country: US (occurrence: US)
  Receive Date: 20200114
  Receipt Date: 20200114
  Transmission Date: 20200409
  Serious: Yes (Disabling)
  Sender: FDA-Public Use
  Company Number: None

PATIENT
  Age: 91 Year
  Sex: Female
  Weight: 56.7 kg

DRUGS (4)
  1. ARMOUR THYROID [Concomitant]
     Active Substance: THYROID, PORCINE
  2. LEVOFLOXACIN. [Suspect]
     Active Substance: LEVOFLOXACIN
     Indication: DRUG THERAPY
     Dosage: ?          QUANTITY:60 MG MILLIGRAM(S);?
     Route: 042
  3. PREDNISONE. [Concomitant]
     Active Substance: PREDNISONE
  4. BAUSCH + LOMB MURO 128 [Concomitant]

REACTIONS (2)
  - Musculoskeletal discomfort [None]
  - Adverse event [None]

NARRATIVE: CASE EVENT DATE: 20190518
